FAERS Safety Report 13386776 (Version 8)
Quarter: 2018Q2

REPORT INFORMATION
  Report Type: Spontaneous
  Country: US (occurrence: US)
  Receive Date: 20170330
  Receipt Date: 20180626
  Transmission Date: 20180711
  Serious: Yes (Hospitalization, Other)
  Sender: FDA-Public Use
  Company Number: US-PFIZER INC-2017134882

PATIENT
  Age: 70 Year
  Sex: Female
  Weight: 133.3 kg

DRUGS (5)
  1. IBRANCE [Suspect]
     Active Substance: PALBOCICLIB
     Dosage: 100 MG, CYCLIC (DAYS 1-21 Q28 DAYS)
     Route: 048
     Dates: start: 20170307
  2. IBRANCE [Suspect]
     Active Substance: PALBOCICLIB
     Indication: BREAST CANCER METASTATIC
     Dosage: 125 MG, CYCLIC (DAY 1-21 Q 28 DAYS)
     Route: 048
     Dates: start: 20170307
  3. IBRANCE [Suspect]
     Active Substance: PALBOCICLIB
     Dosage: 125 MG, CYCLIC (DAY 1-21 Q 28 DAYS)
     Route: 048
     Dates: start: 20170307
  4. IBRANCE [Suspect]
     Active Substance: PALBOCICLIB
     Dosage: 75 MG, CYCLIC  (DAYS 1-21 Q28 DAYS)
     Route: 048
     Dates: start: 20170307
  5. IBRANCE [Suspect]
     Active Substance: PALBOCICLIB
     Dosage: 125 MG, CYCLIC (DAY 1-21 Q 28 DAYS)
     Route: 048
     Dates: start: 20170307

REACTIONS (15)
  - Chest pain [Unknown]
  - Dysuria [Not Recovered/Not Resolved]
  - Eye irritation [Unknown]
  - Hypersensitivity [Unknown]
  - Blood glucose decreased [Unknown]
  - Cystitis [Unknown]
  - Dyspnoea [Unknown]
  - Lacrimation increased [Unknown]
  - Thrombosis [Unknown]
  - Peripheral swelling [Unknown]
  - Neoplasm progression [Unknown]
  - Blood glucose increased [Unknown]
  - Fatigue [Unknown]
  - Nasopharyngitis [Unknown]
  - Full blood count decreased [Unknown]
